FAERS Safety Report 8225188-6 (Version None)
Quarter: 2012Q1

REPORT INFORMATION
  Report Type: 
  Country: None (occurrence: None)
  Receive Date: 20120321
  Receipt Date: 20120319
  Transmission Date: 20120608
  Serious: Yes (Hospitalization, Disabling)
  Sender: FDA-Public Use
  Company Number: US-MERCK-1104USA00795

PATIENT
  Age: 69 Year
  Sex: Female

DRUGS (11)
  1. FOSAMAX [Suspect]
     Route: 048
     Dates: start: 20061231, end: 20080120
  2. ALENDRONATE SODIUM [Suspect]
     Indication: OSTEOPOROSIS
     Route: 048
     Dates: start: 20080730
  3. FOSAMAX [Suspect]
     Route: 048
     Dates: start: 20061231, end: 20080120
  4. FOSAMAX [Suspect]
     Route: 048
     Dates: start: 20001215, end: 20010809
  5. FOSAMAX [Suspect]
     Route: 048
     Dates: start: 20001215, end: 20010809
  6. FOSAMAX [Suspect]
     Indication: OSTEOPOROSIS
     Route: 048
     Dates: start: 20040101, end: 20101201
  7. ATENOLOL [Concomitant]
     Route: 065
     Dates: start: 20030101
  8. ALENDRONATE SODIUM [Suspect]
     Route: 048
     Dates: start: 20090308, end: 20090607
  9. ALENDRONATE SODIUM [Suspect]
     Route: 048
     Dates: start: 20090308, end: 20090607
  10. ALENDRONATE SODIUM [Suspect]
     Indication: OSTEOPENIA
     Route: 048
     Dates: start: 20080730
  11. FOSAMAX [Suspect]
     Indication: OSTEOPENIA
     Route: 048
     Dates: start: 20040101, end: 20101201

REACTIONS (15)
  - ADENOMA BENIGN [None]
  - HAEMATOMA [None]
  - GASTROINTESTINAL TRACT ADENOMA [None]
  - JOINT EFFUSION [None]
  - FALL [None]
  - LUNG NEOPLASM [None]
  - DIVERTICULUM INTESTINAL [None]
  - FIBULA FRACTURE [None]
  - TIBIA FRACTURE [None]
  - OSTEOPENIA [None]
  - CATARACT [None]
  - HAEMORRHAGIC ANAEMIA [None]
  - HIATUS HERNIA [None]
  - FEMUR FRACTURE [None]
  - INTERSTITIAL LUNG DISEASE [None]
